FAERS Safety Report 4523356-8 (Version None)
Quarter: 2004Q4

REPORT INFORMATION
  Report Type: 
  Country: None (occurrence: None)
  Receive Date: 20041209
  Receipt Date: 20041123
  Transmission Date: 20050328
  Serious: Yes (Hospitalization)
  Sender: FDA-Public Use
  Company Number: 2004100191

PATIENT
  Sex: Female

DRUGS (2)
  1. BEXTRA [Suspect]
     Indication: ARTHRITIS
     Dosage: 10 MG (10 MG, AS NEEDED),
  2. TRAZODONE HCL [Concomitant]

REACTIONS (9)
  - BLISTER [None]
  - BLOOD URINE PRESENT [None]
  - ERYTHEMA [None]
  - HEADACHE [None]
  - KIDNEY INFECTION [None]
  - OEDEMA PERIPHERAL [None]
  - ORAL MUCOSAL BLISTERING [None]
  - PYREXIA [None]
  - RASH PRURITIC [None]
